FAERS Safety Report 5471577-2 (Version None)
Quarter: 2007Q3

REPORT INFORMATION
  Report Type: 
  Country: None (occurrence: None)
  Receive Date: 20070928
  Receipt Date: 20070122
  Transmission Date: 20080115
  Serious: No
  Sender: FDA-Public Use
  Company Number: US-BRISTOL-MYERS SQUIBB COMPANY-13651310

PATIENT
  Age: 46 Year
  Sex: Female
  Weight: 3 kg

DRUGS (1)
  1. DEFINITY [Suspect]
     Indication: STRESS ECHOCARDIOGRAM
     Dosage: (.08ML OF 1.5ML/VIAL)( 7 TO 8CC OF NS)
     Route: 042

REACTIONS (2)
  - FLANK PAIN [None]
  - MUSCULOSKELETAL STIFFNESS [None]
